FAERS Safety Report 24145201 (Version 1)
Quarter: 2024Q3

REPORT INFORMATION
  Report Type: Report from Study
  Country: PH (occurrence: None)
  Receive Date: 20240729
  Receipt Date: 20240729
  Transmission Date: 20241017
  Serious: Yes (Hospitalization, Other)
  Sender: ASTRAZENECA
  Company Number: 2023A005601

PATIENT
  Sex: Female

DRUGS (1)
  1. TAGRISSO [Suspect]
     Active Substance: OSIMERTINIB
     Indication: Lung neoplasm malignant
     Route: 048
     Dates: start: 20220225, end: 202212

REACTIONS (4)
  - Hepatitis [Unknown]
  - Blood creatinine increased [Unknown]
  - Pulmonary oedema [Unknown]
  - Multi-organ disorder [Unknown]
